FAERS Safety Report 12463293 (Version 1)
Quarter: 2016Q2

REPORT INFORMATION
  Report Type: Spontaneous
  Country: US (occurrence: None)
  Receive Date: 20160613
  Receipt Date: 20160613
  Transmission Date: 20160815
  Serious: No
  Sender: FDA-Public Use
  Company Number: None

PATIENT
  Age: 72 Year
  Sex: Female

DRUGS (8)
  1. PROIOTIC AMLODIPINE [Concomitant]
  2. MAGNESIUM [Concomitant]
     Active Substance: MAGNESIUM
  3. MVI [Concomitant]
     Active Substance: VITAMINS
  4. EXJADE [Suspect]
     Active Substance: DEFERASIROX
  5. CURCUMIN POW [Concomitant]
  6. VITAMIN D [Concomitant]
     Active Substance: CHOLECALCIFEROL
  7. EXJADE [Suspect]
     Active Substance: DEFERASIROX
     Indication: IRON DEFICIENCY
     Route: 048
     Dates: start: 201603
  8. VITAMIN C [Concomitant]
     Active Substance: ASCORBIC ACID

REACTIONS (1)
  - Nephropathy toxic [None]

NARRATIVE: CASE EVENT DATE: 201606
